FAERS Safety Report 8586063-0 (Version None)
Quarter: 2012Q3

REPORT INFORMATION
  Report Type: 
  Country: None (occurrence: None)
  Receive Date: 20120810
  Receipt Date: 20110302
  Transmission Date: 20120928
  Serious: Yes (Death)
  Sender: FDA-Public Use
  Company Number: US-ROCHE-1027973

PATIENT
  Sex: Female
  Weight: 115 kg

DRUGS (11)
  1. LISINOPRIL [Concomitant]
     Indication: HYPERTENSION
     Route: 048
  2. PEGASYS [Suspect]
     Indication: HEPATITIS C
     Route: 058
     Dates: start: 20101223, end: 20110113
  3. PEGASYS [Suspect]
     Route: 058
     Dates: start: 20101105
  4. GLIPIZIDE [Concomitant]
     Route: 048
  5. FLUOXETINE HCL [Concomitant]
     Indication: DEPRESSION
     Route: 048
  6. SPIRONOLACTONE [Concomitant]
     Indication: OEDEMA
     Route: 048
  7. PROPRANOLOL [Concomitant]
     Route: 048
  8. OMEPRAZOLE [Concomitant]
  9. GLIPIZIDE [Concomitant]
     Indication: DIABETES MELLITUS
     Route: 048
  10. FOSAMAX [Concomitant]
  11. RIBAVIRIN [Suspect]
     Indication: HEPATITIS C
     Dates: start: 20101105

REACTIONS (5)
  - SEPSIS [None]
  - MULTI-ORGAN FAILURE [None]
  - ASCITES [None]
  - EMPHYSEMATOUS CYSTITIS [None]
  - URINARY TRACT INFECTION [None]
